FAERS Safety Report 7874622 (Version 3)
Quarter: 2013Q2

REPORT INFORMATION
  Report Type: Spontaneous
  Country: GB (occurrence: None)
  Receive Date: 20110307
  Receipt Date: 20130415
  Transmission Date: 20140414
  Serious: Yes (Hospitalization)
  Sender: FDA-Public Use
  Company Number: AUR-APL-2011-00623

PATIENT
  Age: 24 Year
  Sex: Male

DRUGS (8)
  1. CITALOPRAM [Suspect]
     Indication: ANXIETY
     Dosage: 20 MG, ORAL
     Route: 048
     Dates: start: 20110128, end: 20110208
  2. CITALOPRAM [Suspect]
     Indication: OBSESSIVE-COMPULSIVE DISORDER
     Dosage: 20 MG, ORAL
     Route: 048
     Dates: start: 20110128, end: 20110208
  3. FLUOXETINE [Suspect]
     Indication: ANXIETY
     Dosage: 20MG, ORAL
     Route: 048
     Dates: start: 20101231, end: 20110127
  4. FLUOXETINE [Suspect]
     Indication: OBSESSIVE-COMPULSIVE DISORDER
     Dosage: 20MG, ORAL
     Route: 048
     Dates: start: 20101231, end: 20110127
  5. AMOXICILLIN [Concomitant]
  6. DICLOFENAC [Concomitant]
  7. OMEPRAZOLE [Concomitant]
  8. SERETIDE [Concomitant]

REACTIONS (8)
  - Vomiting [None]
  - Body temperature fluctuation [None]
  - Feeling of body temperature change [None]
  - Headache [None]
  - Serotonin syndrome [None]
  - Hyperhidrosis [None]
  - Drug interaction [None]
  - Inappropriate schedule of drug administration [None]
